FAERS Safety Report 5622426-0 (Version None)
Quarter: 2008Q1

REPORT INFORMATION
  Report Type: 
  Country: None (occurrence: None)
  Receive Date: 20080114
  Receipt Date: 20070815
  Transmission Date: 20080703
  Serious: Yes (Other)
  Sender: FDA-Public Use
  Company Number: A03200705157

PATIENT
  Age: 86 Year
  Sex: Male

DRUGS (7)
  1. PLAVIX [Suspect]
     Indication: ARTERIAL BYPASS OPERATION
     Dosage: 75 MG QD - ORAL
     Route: 048
     Dates: start: 20070501, end: 20070801
  2. ESOMEPRAZOLE [Concomitant]
  3. DILTIAZEM HYDROCHLORIDE [Concomitant]
  4. ALPRAZOLAM [Concomitant]
  5. IRON [Concomitant]
  6. LISINOPRIL [Concomitant]
  7. LOTREL [Concomitant]

REACTIONS (2)
  - ERYTHEMA [None]
  - SKIN EXFOLIATION [None]
